FAERS Safety Report 6980485-7 (Version None)
Quarter: 2010Q3

REPORT INFORMATION
  Report Type: 
  Country: None (occurrence: None)
  Receive Date: 20100914
  Receipt Date: 20100830
  Transmission Date: 20110219
  Serious: Yes (Other)
  Sender: FDA-Public Use
  Company Number: PHHY2010AU51658

PATIENT
  Sex: Male
  Weight: 71 kg

DRUGS (3)
  1. ZOLEDRONIC [Suspect]
     Dosage: 5 MG
     Route: 042
     Dates: start: 20090325
  2. PANAMAX [Concomitant]
     Indication: OSTEOARTHRITIS
     Dosage: 2 TABLET
     Route: 048
  3. MOBIL [Concomitant]
     Dosage: AS REQUIRED
     Route: 048

REACTIONS (3)
  - HEADACHE [None]
  - MALAISE [None]
  - VISUAL IMPAIRMENT [None]
